FAERS Safety Report 9340477 (Version 1)
Quarter: 2013Q2

REPORT INFORMATION
  Report Type: Spontaneous
  Country: US (occurrence: None)
  Receive Date: 20130610
  Receipt Date: 20130610
  Transmission Date: 20140414
  Serious: Yes (Life-Threatening, Hospitalization, Other)
  Sender: FDA-Public Use
  Company Number: None

PATIENT
  Age: 69 Year
  Sex: Female
  Weight: 60.78 kg

DRUGS (1)
  1. CHLORTHALIDONE [Suspect]
     Route: 048
     Dates: start: 20130226, end: 20130301

REACTIONS (5)
  - Hyponatraemia [None]
  - Fall [None]
  - Rib fracture [None]
  - Coma [None]
  - Haemorrhage [None]
